FAERS Safety Report 9480394 (Version 1)
Quarter: 2013Q3

REPORT INFORMATION
  Report Type: Spontaneous
  Country: US (occurrence: US)
  Receive Date: 20130828
  Receipt Date: 20130828
  Transmission Date: 20140515
  Serious: Yes (Death, Hospitalization, Other)
  Sender: FDA-Public Use
  Company Number: US-AMGEN-KDL101590

PATIENT
  Age: 73 Year
  Sex: Male

DRUGS (1)
  1. ENBREL [Suspect]
     Indication: RHEUMATOID ARTHRITIS
     Dosage: 25 MG, 2 TIMES/WK
     Route: 065
     Dates: start: 2003, end: 200408

REACTIONS (5)
  - Large intestine perforation [Fatal]
  - Plasma cell myeloma [Unknown]
  - Hip fracture [Unknown]
  - Thrombosis [Unknown]
  - Cardiac pacemaker insertion [Unknown]
